FAERS Safety Report 5958676-3 (Version None)
Quarter: 2008Q4

REPORT INFORMATION
  Report Type: 
  Country: None (occurrence: None)
  Receive Date: 20081110
  Receipt Date: 20080929
  Transmission Date: 20090506
  Serious: No
  Sender: FDA-Public Use
  Company Number: 2008US002649

PATIENT
  Age: 69 Year
  Sex: Female

DRUGS (12)
  1. LEXISCAN [Suspect]
     Indication: SCAN MYOCARDIAL PERFUSION
     Dates: start: 20080929, end: 20080929
  2. TOPROL-XL [Concomitant]
  3. EVISTA [Concomitant]
  4. OMEPRAZOLE (OMEPRAZOLE SODIUM) [Concomitant]
  5. SYNTHROID [Concomitant]
  6. BUSPIRONE HCL (BUSPIRONE HYDROCHLORIDE) [Concomitant]
  7. ZOLPIDEM TARTRATE [Concomitant]
  8. XANAX [Concomitant]
  9. TRAMADOL HCL [Concomitant]
  10. IBUPROFEN [Concomitant]
  11. VITAMIN D (COLECALCIFEROL) [Concomitant]
  12. ARICEPT [Concomitant]

REACTIONS (8)
  - DIARRHOEA [None]
  - DIZZINESS [None]
  - FEELING ABNORMAL [None]
  - FEELING JITTERY [None]
  - HEADACHE [None]
  - NAUSEA [None]
  - PAIN [None]
  - SENSATION OF HEAVINESS [None]
